FAERS Safety Report 20077763 (Version 1)
Quarter: 2021Q4

REPORT INFORMATION
  Report Type: Spontaneous
  Country: DE (occurrence: DE)
  Receive Date: 20211116
  Receipt Date: 20211116
  Transmission Date: 20220303
  Serious: Yes (Other)
  Sender: FDA-Public Use
  Company Number: DE-EMBRYOTOX-202009094

PATIENT
  Age: 26 Year
  Sex: Female
  Weight: 80 kg

DRUGS (5)
  1. ESCITALOPRAM [Suspect]
     Active Substance: ESCITALOPRAM OXALATE
     Indication: Depression
     Dosage: 10 MILLIGRAM, QD
     Route: 048
  2. QUETIAPINE [Suspect]
     Active Substance: QUETIAPINE
     Indication: Borderline personality disorder
     Dosage: 300 [MG/D ]/ INITIAL 200MG DAILY, DOSAGE INCREASED TO 300MG DAILY, (0. - 40.2. GESTATIONAL WEEK)
     Route: 048
     Dates: start: 20200104, end: 20201012
  3. FOLIC ACID [Concomitant]
     Active Substance: FOLIC ACID
     Indication: Prophylaxis of neural tube defect
     Dosage: 0. - 35.4. GESTATIONAL WEEK
     Route: 048
     Dates: start: 20200104, end: 20200909
  4. OMEPRAZOL                          /00661201/ [Concomitant]
     Indication: Product used for unknown indication
     Dosage: 20 [MG/D (BEI BEDARF) ]/ IF REQUIRED, (TRIMESTER: 1ST + 3RD )
     Route: 048
  5. BOOSTRIX [Concomitant]
     Active Substance: TETANUS TOXOID, REDUCED DIPHTHERIA TOXOID AND ACELLULAR PERTUSSIS VACCINE, ADSORBED ANTIGENS
     Indication: Immunisation
     Dosage: 32.5. - 32.5. GESTATIONAL WEEK
     Route: 030
     Dates: start: 20200820, end: 20200820

REACTIONS (2)
  - Gestational diabetes [Recovered/Resolved]
  - Exposure during pregnancy [Recovered/Resolved]
